FAERS Safety Report 8809684 (Version 1)
Quarter: 2012Q4

REPORT INFORMATION
  Report Type: 
  Country: US (occurrence: US)
  Receive Date: 20120926
  Receipt Date: 20120926
  Transmission Date: 20130627
  Serious: Yes (Other)
  Sender: FDA-Public Use
  Company Number: US-ROCHE-1127990

PATIENT
  Sex: Female

DRUGS (8)
  1. AVASTIN [Suspect]
     Indication: BREAST CANCER FEMALE
     Route: 065
  2. XELODA [Suspect]
     Indication: BREAST CANCER FEMALE
     Route: 065
  3. XELODA [Suspect]
     Dosage: 3 cycles
     Route: 065
     Dates: start: 20060516
  4. FEMARA [Concomitant]
  5. ZOMETA [Concomitant]
  6. FASLODEX [Concomitant]
  7. ZOFRAN [Concomitant]
  8. DEXAMETHASONE [Concomitant]

REACTIONS (1)
  - Disease progression [Unknown]
